FAERS Safety Report 8772039 (Version 1)
Quarter: 2012Q4

REPORT INFORMATION
  Report Type: 
  Country: AR (occurrence: AR)
  Receive Date: 20120905
  Receipt Date: 20120905
  Transmission Date: 20130627
  Serious: Yes (Other)
  Sender: FDA-Public Use
  Company Number: PHHY2012AR076275

PATIENT
  Sex: Female

DRUGS (1)
  1. DIOVAN [Suspect]
     Indication: BLOOD PRESSURE
     Dosage: 0.5 DF(160 mg vals), daily

REACTIONS (4)
  - Morton^s neuralgia [Recovering/Resolving]
  - Gait disturbance [Recovering/Resolving]
  - Foot deformity [Recovering/Resolving]
  - Wrong technique in drug usage process [Unknown]
